FAERS Safety Report 12604582 (Version 3)
Quarter: 2016Q3

REPORT INFORMATION
  Report Type: Spontaneous
  Country: FR (occurrence: FR)
  Receive Date: 20160728
  Receipt Date: 20160923
  Transmission Date: 20161109
  Serious: Yes (Death, Other)
  Sender: FDA-Public Use
  Company Number: FR-BAYER-2016-144282

PATIENT
  Age: 60 Year
  Sex: Male

DRUGS (6)
  1. PIPERACILLIN AND TAZOBACTAM [Concomitant]
     Active Substance: PIPERACILLIN SODIUM\TAZOBACTAM SODIUM
     Indication: CITROBACTER SEPSIS
     Dosage: UNK
  2. CEFTAZIDIME. [Concomitant]
     Active Substance: CEFTAZIDIME
     Indication: CITROBACTER SEPSIS
     Dosage: UNK
  3. AKTIL [AMOXICILLIN,CLAVULANIC ACID] [Concomitant]
     Indication: CITROBACTER SEPSIS
     Dosage: UNK
  4. ERLOTINIB [Interacting]
     Active Substance: ERLOTINIB
     Indication: BRAIN NEOPLASM
     Dosage: 150 MG, QD
  5. CIPROFLOXACIN. [Suspect]
     Active Substance: CIPROFLOXACIN
     Indication: CITROBACTER SEPSIS
     Dosage: UNK
  6. ERLOTINIB [Interacting]
     Active Substance: ERLOTINIB
     Indication: DISEASE PROGRESSION

REACTIONS (7)
  - Large intestinal obstruction [Fatal]
  - Large intestine perforation [Fatal]
  - Gastrointestinal necrosis [Fatal]
  - Drug interaction [Fatal]
  - Pneumoperitoneum [Fatal]
  - Intestinal ischaemia [Fatal]
  - Psoas abscess [Fatal]
